FAERS Safety Report 9391458 (Version 2)
Quarter: 2013Q3

REPORT INFORMATION
  Report Type: Spontaneous
  Country: US (occurrence: US)
  Receive Date: 20130709
  Receipt Date: 20130722
  Transmission Date: 20140515
  Serious: Yes (Hospitalization)
  Sender: FDA-Public Use
  Company Number: US-B.I. PHARMACEUTICALS,INC./RIDGEFIELD-2013-BI-19450BP

PATIENT
  Age: 72 Year
  Sex: Male
  Weight: 74 kg

DRUGS (12)
  1. SPIRIVA [Suspect]
     Indication: CHRONIC OBSTRUCTIVE PULMONARY DISEASE
     Dosage: 18 MCG
     Route: 055
     Dates: start: 2011
  2. HYDROCHLOROTHIAZIDE [Concomitant]
     Indication: FLUID RETENTION
     Dosage: 30 MG
     Route: 048
  3. JANUVIA [Concomitant]
     Indication: DIABETES MELLITUS
     Dosage: 100 MG
     Route: 048
     Dates: start: 2012
  4. METOPROLOL [Concomitant]
     Indication: HYPERTENSION
     Dosage: 25 MG
     Route: 048
  5. PLAVIX [Concomitant]
     Indication: CORONARY ARTERIAL STENT INSERTION
     Dosage: 75 MG
     Route: 048
     Dates: start: 2013
  6. BUMETANIDE [Concomitant]
     Indication: FLUID RETENTION
     Dosage: 1 MG
     Route: 048
  7. ISOSORBIDE [Concomitant]
     Indication: BLOOD PRESSURE MANAGEMENT
     Dosage: 30 MG
     Route: 048
     Dates: start: 2013
  8. SIMVASTATIN [Concomitant]
     Indication: BLOOD CHOLESTEROL INCREASED
     Dosage: 40 MG
     Route: 048
     Dates: start: 2007
  9. ASPIRIN [Concomitant]
     Indication: ANTICOAGULANT THERAPY
     Dosage: 81 MG
     Route: 048
     Dates: start: 1995
  10. TOPROL [Concomitant]
     Indication: HEART RATE INCREASED
     Dosage: 25 MG
     Route: 048
     Dates: start: 2013
  11. HYDRALAZINE [Concomitant]
     Indication: BLOOD PRESSURE MANAGEMENT
     Dosage: 30 MG
     Route: 048
     Dates: start: 2013
  12. PROVERTIC HFA [Concomitant]
     Indication: CHRONIC OBSTRUCTIVE PULMONARY DISEASE
     Route: 055
     Dates: start: 2011

REACTIONS (4)
  - Coronary artery occlusion [Recovered/Resolved]
  - Dyspnoea [Recovered/Resolved]
  - Chest pain [Recovered/Resolved]
  - Pulmonary oedema [Recovered/Resolved]
